FAERS Safety Report 9017149 (Version 1)
Quarter: 2013Q1

REPORT INFORMATION
  Report Type: Spontaneous
  Country: IT (occurrence: IT)
  Receive Date: 20130117
  Receipt Date: 20130117
  Transmission Date: 20140127
  Serious: Yes (Hospitalization)
  Sender: FDA-Public Use
  Company Number: IT-TEVA-380325ISR

PATIENT
  Age: 67 Year
  Sex: Male

DRUGS (5)
  1. ATENOLOLO [Suspect]
     Indication: HYPERTENSION
     Dosage: 100 MILLIGRAM DAILY;
     Route: 048
     Dates: start: 20121016, end: 20121216
  2. ATENOLOLO [Suspect]
     Dosage: 100 MILLIGRAM DAILY;
     Route: 048
     Dates: start: 20121016, end: 20121216
  3. IPERTEN [Concomitant]
  4. OLMEGAN [Concomitant]
     Dosage: OLMESARTAN MEDOXOMIL 20 MG / HCTZ 12.5 MG
  5. OLMEGAN [Concomitant]

REACTIONS (1)
  - Tachycardia [Unknown]
